FAERS Safety Report 8353135-5 (Version None)
Quarter: 2012Q2

REPORT INFORMATION
  Report Type: 
  Country: None (occurrence: None)
  Receive Date: 20120511
  Receipt Date: 20120508
  Transmission Date: 20120825
  Serious: Yes (Other)
  Sender: FDA-Public Use
  Company Number: US-PFIZER INC-2012064609

PATIENT
  Sex: Female
  Weight: 83.9 kg

DRUGS (4)
  1. FELDENE [Suspect]
     Dosage: UNK
  2. TOLECTIN [Suspect]
     Dosage: UNK
  3. VOLTAREN [Suspect]
     Dosage: UNK
  4. CEFTIN [Suspect]
     Dosage: UNK

REACTIONS (2)
  - HAEMORRHAGE [None]
  - HYPERSENSITIVITY [None]
